FAERS Safety Report 7456265 (Version 4)
Quarter: 2013Q2

REPORT INFORMATION
  Report Type: Report from Study
  Country: US (occurrence: US)
  Receive Date: 20100707
  Receipt Date: 20130403
  Transmission Date: 20140414
  Serious: Yes (Hospitalization, Other)
  Sender: FDA-Public Use
  Company Number: US-PFIZER INC-2010079913

PATIENT
  Age: 50 Year
  Sex: Male
  Weight: 101.13 kg

DRUGS (4)
  1. LYRICA [Suspect]
     Dosage: 150 MG, UNK
     Dates: start: 20100604
  2. ZOLOFT [Concomitant]
     Dosage: UNK
  3. NAVANE [Concomitant]
     Dosage: UNK
  4. ENALAPRIL [Concomitant]
     Indication: HYPERTENSION
     Dosage: UNK

REACTIONS (4)
  - Circulatory collapse [Recovered/Resolved]
  - Respiratory arrest [Recovered/Resolved]
  - Unresponsive to stimuli [Recovered/Resolved]
  - Intentional drug misuse [Unknown]
